FAERS Safety Report 23899344 (Version 2)
Quarter: 2024Q3

REPORT INFORMATION
  Report Type: Spontaneous
  Country: US (occurrence: US)
  Receive Date: 20240526
  Receipt Date: 20240816
  Transmission Date: 20241017
  Serious: Yes (Other)
  Sender: BIOCON
  Company Number: US-MIMS-BCONMC-3082

PATIENT

DRUGS (4)
  1. SEMGLEE (INSULIN GLARGINE) [Suspect]
     Active Substance: INSULIN GLARGINE
     Indication: Type 2 diabetes mellitus
     Dosage: 26 UNITS/ML, QD
     Route: 065
  2. SEMGLEE (INSULIN GLARGINE) [Suspect]
     Active Substance: INSULIN GLARGINE
     Dosage: 50 UNITS/ML, QD
     Route: 058
  3. METFORMIN [Concomitant]
     Active Substance: METFORMIN HYDROCHLORIDE
     Indication: Type 2 diabetes mellitus
     Dosage: UNK
     Route: 065
  4. OZEMPIC [Concomitant]
     Active Substance: SEMAGLUTIDE
     Indication: Type 2 diabetes mellitus
     Dosage: UNK
     Route: 065

REACTIONS (2)
  - Blood glucose decreased [Recovered/Resolved]
  - Blood glucose increased [Unknown]

NARRATIVE: CASE EVENT DATE: 20240207
